FAERS Safety Report 20883145 (Version 3)
Quarter: 2022Q3

REPORT INFORMATION
  Report Type: Spontaneous
  Country: US (occurrence: US)
  Receive Date: 20220527
  Receipt Date: 20220919
  Transmission Date: 20221027
  Serious: Yes (Hospitalization, Other)
  Sender: FDA-Public Use
  Company Number: US-BAYER-2022A073385

PATIENT
  Age: 58 Year
  Sex: Female

DRUGS (2)
  1. GADAVIST [Suspect]
     Active Substance: GADOBUTROL
     Indication: Magnetic resonance imaging head
     Dosage: UNK, ONCE
     Dates: start: 20211112, end: 20211112
  2. GADAVIST [Suspect]
     Active Substance: GADOBUTROL
     Indication: Brain cancer metastatic
     Dosage: UNK
     Dates: start: 20220519, end: 20220519

REACTIONS (7)
  - Anaphylactic reaction [Recovered/Resolved with Sequelae]
  - Pneumonia aspiration [Recovered/Resolved]
  - Feeling hot [Recovered/Resolved with Sequelae]
  - Vomiting [Recovered/Resolved with Sequelae]
  - Loss of consciousness [Recovered/Resolved with Sequelae]
  - Pulse absent [Recovered/Resolved with Sequelae]
  - Cyanosis [Recovered/Resolved with Sequelae]

NARRATIVE: CASE EVENT DATE: 20220519
